FAERS Safety Report 16402579 (Version 2)
Quarter: 2019Q2

REPORT INFORMATION
  Report Type: Spontaneous
  Country: US (occurrence: US)
  Receive Date: 20190607
  Receipt Date: 20190607
  Transmission Date: 20190711
  Serious: No
  Sender: FDA-Public Use
  Company Number: US-MALLINCKRODT-T201806906

PATIENT
  Age: 54 Year
  Sex: Female

DRUGS (7)
  1. ZOLOFT [Concomitant]
     Active Substance: SERTRALINE HYDROCHLORIDE
     Indication: MENTAL DISORDER
     Dosage: UNK
     Route: 065
  2. ADDERALL [Concomitant]
     Active Substance: AMPHETAMINE ASPARTATE\AMPHETAMINE SULFATE\DEXTROAMPHETAMINE SACCHARATE\DEXTROAMPHETAMINE SULFATE
     Indication: MENTAL DISORDER
     Dosage: 10 MG,  COUPLE TIMES A WEEK
     Route: 065
  3. BUSPAR [Concomitant]
     Active Substance: BUSPIRONE HYDROCHLORIDE
     Indication: MENTAL DISORDER
     Dosage: UNK
     Route: 065
  4. HYDROCODONE/ACETAMINOPHEN [Suspect]
     Active Substance: ACETAMINOPHEN\HYDROCODONE
     Indication: BACK PAIN
     Dosage: 10/325 MG, THREE TIMES DAILY
     Route: 048
     Dates: start: 201810
  5. MARIJUANA [Concomitant]
     Active Substance: CANNABIS SATIVA SUBSP. INDICA TOP
     Indication: MENTAL DISORDER
     Dosage: UNK
     Route: 065
  6. WELLBUTRIN [Concomitant]
     Active Substance: BUPROPION HYDROCHLORIDE
     Indication: MENTAL DISORDER
     Dosage: UNK
     Route: 065
  7. TOPAMAX [Concomitant]
     Active Substance: TOPIRAMATE
     Indication: MENTAL DISORDER
     Dosage: UNK
     Route: 065

REACTIONS (1)
  - Drug screen negative [Unknown]

NARRATIVE: CASE EVENT DATE: 2018
